APPROVED DRUG PRODUCT: CIMETIDINE
Active Ingredient: CIMETIDINE
Strength: 200MG
Dosage Form/Route: TABLET;ORAL
Application: A074349 | Product #001
Applicant: WATSON LABORATORIES INC
Approved: Aug 30, 1996 | RLD: No | RS: No | Type: DISCN